FAERS Safety Report 16069314 (Version 2)
Quarter: 2019Q2

REPORT INFORMATION
  Report Type: Report from Study
  Country: None (occurrence: CH)
  Receive Date: 20190313
  Receipt Date: 20190408
  Transmission Date: 20190711
  Serious: Yes (Death)
  Sender: FDA-Public Use
  Company Number: CH-ABBVIE-19S-151-2703319-00

PATIENT
  Sex: Female

DRUGS (2)
  1. DUODOPA [Suspect]
     Active Substance: CARBIDOPA\LEVODOPA
     Dosage: MD 4.5 ML CR DAY: 4.2 ML/H CR NIGHT: 3.7 ML/H ED: 1 ML 24 H THERAPY
     Route: 050
  2. DUODOPA [Suspect]
     Active Substance: CARBIDOPA\LEVODOPA
     Indication: PARKINSON^S DISEASE
     Dosage: 10 CASSETTES PER WEEK
     Route: 050
     Dates: start: 201705, end: 201903

REACTIONS (1)
  - Pneumonia [Fatal]
